FAERS Safety Report 12312728 (Version 1)
Quarter: 2016Q2

REPORT INFORMATION
  Report Type: Spontaneous
  Country: US (occurrence: US)
  Receive Date: 20160428
  Receipt Date: 20160428
  Transmission Date: 20160815
  Serious: No
  Sender: FDA-Public Use
  Company Number: US-BIOGEN-2016BI00225631

PATIENT

DRUGS (2)
  1. GILENYA [Concomitant]
     Active Substance: FINGOLIMOD HYDROCHLORIDE
  2. TECFIDERA [Suspect]
     Active Substance: DIMETHYL FUMARATE
     Indication: MULTIPLE SCLEROSIS

REACTIONS (2)
  - Fatigue [Unknown]
  - Drug intolerance [Unknown]
